FAERS Safety Report 5056924-8 (Version None)
Quarter: 2006Q2

REPORT INFORMATION
  Report Type: 
  Country: None (occurrence: None)
  Receive Date: 20060620
  Receipt Date: 20050328
  Transmission Date: 20061013
  Serious: Yes (Hospitalization)
  Sender: FDA-Public Use
  Company Number: MK200504-0043-1

PATIENT
  Sex: Female

DRUGS (1)
  1. OPTIRAY 350 [Suspect]
     Dosage: 50 ML,ONE TIME
     Dates: start: 20050324, end: 20050324

REACTIONS (4)
  - ANAPHYLACTIC REACTION [None]
  - COUGH [None]
  - DYSPHONIA [None]
  - DYSPNOEA [None]
